FAERS Safety Report 8948105 (Version 2)
Quarter: 2012Q4

REPORT INFORMATION
  Report Type: 
  Country: JP (occurrence: JP)
  Receive Date: 20121204
  Receipt Date: 20121210
  Transmission Date: 20130627
  Serious: Yes (Hospitalization)
  Sender: FDA-Public Use
  Company Number: JP-GLAXOSMITHKLINE-B0848856A

PATIENT
  Age: 70 Year
  Sex: Female

DRUGS (1)
  1. PAXIL [Suspect]
     Indication: PRODUCT USED FOR UNKNOWN INDICATION
     Dosage: 12.5MG Per day
     Route: 048

REACTIONS (2)
  - Fracture [Unknown]
  - Fall [Unknown]
